FAERS Safety Report 7814732-6 (Version None)
Quarter: 2011Q4

REPORT INFORMATION
  Report Type: 
  Country: None (occurrence: None)
  Receive Date: 20111014
  Receipt Date: 20111011
  Transmission Date: 20120403
  Serious: Yes (Hospitalization)
  Sender: FDA-Public Use
  Company Number: GB-ROCHE-1003903

PATIENT
  Sex: Female

DRUGS (6)
  1. ALBUTEROL [Concomitant]
  2. FORMOTEROL FUMARATE [Concomitant]
  3. QVAR 40 [Concomitant]
  4. XOLAIR [Suspect]
     Indication: ASTHMA
     Route: 058
  5. PREDNISOLONE [Concomitant]
  6. CLARITHROMYCIN [Concomitant]
     Dates: start: 20110707

REACTIONS (1)
  - ASTHMA [None]
